FAERS Safety Report 8032865-9 (Version None)
Quarter: 2011Q4

REPORT INFORMATION
  Report Type: 
  Country: None (occurrence: None)
  Receive Date: 20111229
  Receipt Date: 20111219
  Transmission Date: 20120403
  Serious: Yes (Other)
  Sender: FDA-Public Use
  Company Number: ACO_28527_2011

PATIENT
  Age: 48 Year
  Sex: Female
  Weight: 52.2 kg

DRUGS (6)
  1. VIVELLE-DOT [Concomitant]
  2. AMPYRA [Suspect]
     Indication: GAIT DISTURBANCE
     Dosage: 10 MG, BID, ORAL
     Route: 048
     Dates: start: 20111217, end: 20111217
  3. MORPHINE [Suspect]
     Indication: PAIN
     Dates: start: 20111217, end: 20111217
  4. PROMETRIUM [Concomitant]
  5. PROGESTERONE [Concomitant]
  6. AVONEX [Suspect]
     Indication: PRODUCT USED FOR UNKNOWN INDICATION
     Dosage: WEEKLY
     Dates: start: 20111101, end: 20111216

REACTIONS (15)
  - FALL [None]
  - ERYTHEMA [None]
  - CONFUSIONAL STATE [None]
  - GAIT DISTURBANCE [None]
  - CHEST PAIN [None]
  - PAIN [None]
  - HEADACHE [None]
  - NAUSEA [None]
  - DYSPNOEA [None]
  - DISORIENTATION [None]
  - DIZZINESS [None]
  - MUSCULAR WEAKNESS [None]
  - PALPITATIONS [None]
  - FEELING ABNORMAL [None]
  - URTICARIA [None]
